FAERS Safety Report 5551895-X (Version None)
Quarter: 2007Q4

REPORT INFORMATION
  Report Type: 
  Country: None (occurrence: None)
  Receive Date: 20071212
  Receipt Date: 20071130
  Transmission Date: 20080405
  Serious: Yes (Other)
  Sender: FDA-Public Use
  Company Number: US-PFIZER INC-2007101573

PATIENT
  Sex: Female
  Weight: 56.818 kg

DRUGS (7)
  1. DILANTIN [Suspect]
     Indication: CONVULSION
  2. DILANTIN [Suspect]
     Dosage: TEXT:100 MG   TDD:200 MG
  3. DEPAKOTE [Suspect]
     Indication: CONVULSION
     Dates: start: 19940101, end: 19940101
  4. TEGRETOL [Suspect]
     Indication: CONVULSION
  5. ALL OTHER THERAPEUTIC PRODUCTS [Suspect]
     Indication: CONVULSION
  6. ALL OTHER THERAPEUTIC PRODUCTS [Suspect]
  7. PRIMIDONE [Concomitant]

REACTIONS (16)
  - ALOPECIA [None]
  - AMNESIA [None]
  - COMA [None]
  - DIARRHOEA [None]
  - DRUG INEFFECTIVE [None]
  - EPILEPTIC AURA [None]
  - FATIGUE [None]
  - GINGIVAL BLEEDING [None]
  - GINGIVAL HYPERPLASIA [None]
  - HALLUCINATION [None]
  - HYPOTHYROIDISM [None]
  - OSTEOPENIA [None]
  - RASH [None]
  - SOMNOLENCE [None]
  - UNEVALUABLE EVENT [None]
  - WEIGHT INCREASED [None]
